FAERS Safety Report 10899198 (Version 1)
Quarter: 2015Q1

REPORT INFORMATION
  Report Type: Spontaneous
  Country: US (occurrence: US)
  Receive Date: 20150309
  Receipt Date: 20150309
  Transmission Date: 20150721
  Serious: Yes (Death, Other)
  Sender: FDA-Public Use
  Company Number: US-BAXTER-2015BAX004740

PATIENT
  Age: 58 Year
  Sex: Male

DRUGS (2)
  1. DIANEAL LOW CALCIUM PERITONEAL DIALYSIS SOLUTION WITH DEXTROSE [Suspect]
     Active Substance: CALCIUM CHLORIDE\DEXTROSE\MAGNESIUM CHLORIDE\SODIUM CHLORIDE\SODIUM LACTATE
     Indication: PERITONEAL DIALYSIS
     Route: 033
     Dates: end: 20150124
  2. DIANEAL LOW CALCIUM PERITONEAL DIALYSIS SOLUTION WITH DEXTROSE [Suspect]
     Active Substance: CALCIUM CHLORIDE\DEXTROSE\MAGNESIUM CHLORIDE\SODIUM CHLORIDE\SODIUM LACTATE
     Indication: PERITONEAL DIALYSIS
     Route: 033
     Dates: end: 20150124

REACTIONS (10)
  - Coronary artery disease [Fatal]
  - Condition aggravated [Unknown]
  - Peritoneal dialysis complication [Unknown]
  - Malaise [Not Recovered/Not Resolved]
  - Gangrene [Unknown]
  - Swelling [Unknown]
  - Septic shock [Fatal]
  - Poor peripheral circulation [Unknown]
  - Chronic kidney disease [Fatal]
  - Hypotension [Unknown]

NARRATIVE: CASE EVENT DATE: 20150126
